FAERS Safety Report 6465643-2 (Version None)
Quarter: 2009Q4

REPORT INFORMATION
  Report Type: 
  Country: None (occurrence: None)
  Receive Date: 20091124
  Receipt Date: 20091109
  Transmission Date: 20100525
  Serious: Yes (Hospitalization, Other)
  Sender: FDA-Public Use
  Company Number: AUR-APL-2009-01241

PATIENT
  Age: 60 Year
  Sex: Male

DRUGS (2)
  1. ONDANSETRON [Suspect]
     Indication: PREOPERATIVE CARE
     Dosage: 4MG, ONCE, IV
     Route: 042
  2. GLYCOPYRROLATE [Suspect]
     Indication: PREOPERATIVE CARE
     Dosage: 10MCG/KG, ONCE

REACTIONS (4)
  - HEART RATE DECREASED [None]
  - LOSS OF CONSCIOUSNESS [None]
  - PARADOXICAL DRUG REACTION [None]
  - RESPIRATORY ARREST [None]
